FAERS Safety Report 6222037-2 (Version None)
Quarter: 2009Q2

REPORT INFORMATION
  Report Type: 
  Country: None (occurrence: None)
  Receive Date: 20090609
  Receipt Date: 20090529
  Transmission Date: 20091009
  Serious: Yes (Other)
  Sender: FDA-Public Use
  Company Number: 2009AP002218

PATIENT
  Age: 73 Year
  Sex: Male
  Weight: 81.6475 kg

DRUGS (11)
  1. FLUPHENAZINE DECANOATE [Suspect]
  2. SIMVASTATIN [Concomitant]
  3. UBIDECARENONE [Concomitant]
  4. FISH OIL [Concomitant]
  5. MULTIVITAMIN [Concomitant]
  6. ACETYLSALICYLIC ACID [Concomitant]
  7. RETINOL [Concomitant]
  8. ASCORBIC ACID [Concomitant]
  9. TOCOPHEROL CONCENTRATE CAP [Concomitant]
  10. ZINC [Concomitant]
  11. COPPER [Concomitant]

REACTIONS (3)
  - BLINDNESS UNILATERAL [None]
  - DIPLOPIA [None]
  - MACULAR DEGENERATION [None]
